FAERS Safety Report 6295818-7 (Version None)
Quarter: 2009Q3

REPORT INFORMATION
  Report Type: 
  Country: None (occurrence: None)
  Receive Date: 20090803
  Receipt Date: 20090803
  Transmission Date: 20100115
  Serious: Yes (Life-Threatening)
  Sender: FDA-Public Use
  Company Number: None

PATIENT
  Age: 75 Year
  Sex: Female
  Weight: 71.6683 kg

DRUGS (1)
  1. NITROFURANTOIN MACROCRYSTALLINE [Suspect]
     Indication: KIDNEY INFECTION
     Dosage: 100 MG 4 TIMES A DAY PO
     Route: 048
     Dates: start: 20090723, end: 20090724

REACTIONS (8)
  - ABASIA [None]
  - CHEST DISCOMFORT [None]
  - CHILLS [None]
  - DYSPNOEA [None]
  - INFLUENZA [None]
  - PAINFUL RESPIRATION [None]
  - PNEUMONIA [None]
  - TREMOR [None]
